FAERS Safety Report 24404062 (Version 1)
Quarter: 2024Q4

REPORT INFORMATION
  Report Type: Spontaneous
  Country: US (occurrence: US)
  Receive Date: 20241007
  Receipt Date: 20241007
  Transmission Date: 20250114
  Serious: Yes (Death, Hospitalization, Other)
  Sender: ALEMBIC
  Company Number: US-ALEMBIC PHARMACUETICALS LIMITED-2024SCAL001412

PATIENT

DRUGS (1)
  1. METOPROLOL TARTRATE [Suspect]
     Active Substance: METOPROLOL TARTRATE
     Indication: Product used for unknown indication
     Dosage: UNK
     Route: 065

REACTIONS (6)
  - BRASH syndrome [Fatal]
  - Hyperkalaemia [Fatal]
  - Blood pH decreased [Fatal]
  - Bradycardia [Fatal]
  - Oxygen saturation decreased [Fatal]
  - Blood pressure decreased [Fatal]
